FAERS Safety Report 12115012 (Version 1)
Quarter: 2016Q1

REPORT INFORMATION
  Report Type: Spontaneous
  Country: US (occurrence: US)
  Receive Date: 20160225
  Receipt Date: 20160225
  Transmission Date: 20160526
  Serious: No
  Sender: FDA-Public Use
  Company Number: US-PERNIX THERAPEUTICS-2016PT000004

PATIENT

DRUGS (2)
  1. IBRANCE [Suspect]
     Active Substance: PALBOCICLIB
     Indication: BREAST CANCER
     Dosage: 125 MG, DAILYON DAYS 1-21 EVERY 28 DAYS
     Route: 048
     Dates: start: 20150724
  2. HYDROCODONE BITARTRATE. [Suspect]
     Active Substance: HYDROCODONE BITARTRATE
     Indication: BONE PAIN
     Dosage: UNK, TWO TO THREE TIMES DAILY

REACTIONS (2)
  - Pruritus [Unknown]
  - Muscle spasms [Unknown]
